FAERS Safety Report 5290862-0 (Version None)
Quarter: 2007Q2

REPORT INFORMATION
  Report Type: 
  Country: None (occurrence: None)
  Receive Date: 20070409
  Receipt Date: 20070328
  Transmission Date: 20071010
  Serious: Yes (Other)
  Sender: FDA-Public Use
  Company Number: US-PFIZER INC-2007024678

PATIENT
  Sex: Female
  Weight: 135.2 kg

DRUGS (17)
  1. LIPITOR [Suspect]
     Indication: BLOOD CHOLESTEROL INCREASED
  2. CHANTIX [Suspect]
     Indication: SMOKING CESSATION THERAPY
  3. SIMVASTATIN [Suspect]
     Indication: BLOOD CHOLESTEROL INCREASED
     Dates: start: 20060101, end: 20060101
  4. STATINS [Suspect]
     Indication: BLOOD CHOLESTEROL INCREASED
  5. PREVACID [Concomitant]
  6. ADVAIR DISKUS 100/50 [Concomitant]
  7. MONTELUKAST SODIUM [Concomitant]
  8. SALBUTAMOL [Concomitant]
  9. ALUPENT [Concomitant]
  10. ALPRAZOLAM [Concomitant]
  11. ORPHENADRINE CITRATE [Concomitant]
  12. HYDROCODONE [Concomitant]
  13. NABUMETONE [Concomitant]
  14. ZETIA [Concomitant]
  15. ATENOLOL [Concomitant]
  16. ALL OTHER THERAPEUTIC PRODUCTS [Concomitant]
  17. CALCITRIOL [Concomitant]

REACTIONS (6)
  - COLLAPSE OF LUNG [None]
  - LUNG DISORDER [None]
  - LUNG NEOPLASM MALIGNANT [None]
  - MYALGIA [None]
  - NAUSEA [None]
  - VOMITING [None]
